FAERS Safety Report 8591310 (Version 2)
Quarter: 2013Q3

REPORT INFORMATION
  Report Type: Spontaneous
  Country: US (occurrence: US)
  Receive Date: 20120601
  Receipt Date: 20130718
  Transmission Date: 20140515
  Serious: Yes (Hospitalization, Congenital Anomaly, Other)
  Sender: FDA-Public Use
  Company Number: US-PFIZER INC-2012128610

PATIENT
  Sex: Male
  Weight: 3 kg

DRUGS (12)
  1. ZOLOFT [Suspect]
     Indication: INFECTION
     Dosage: 100 MG, 1X/DAY
     Route: 064
     Dates: start: 20071207, end: 20090225
  2. ZOLOFT [Suspect]
     Indication: DEPRESSION
     Dosage: 50 MG, 3X/DAY
     Route: 064
     Dates: start: 20090521
  3. SERTRALINE [Concomitant]
     Dosage: 100 MG, UNK
     Route: 064
     Dates: start: 20100928
  4. SINGULAIR [Concomitant]
     Dosage: 10 MG, 1X/DAY, EVERY MORNING
     Route: 064
     Dates: start: 20100928
  5. ACETYLSALICYLIC ACID [Concomitant]
     Dosage: UNK
     Route: 064
     Dates: start: 20110124
  6. CALCIUM [Concomitant]
     Dosage: UNK
     Route: 064
     Dates: start: 20110124
  7. FISH OIL [Concomitant]
     Dosage: UNK
     Route: 064
     Dates: start: 20110124
  8. ROBITUSSIN-DM [Concomitant]
     Dosage: UNK
     Route: 064
     Dates: start: 20110124
  9. PRENATAL VITAMINS [Concomitant]
     Dosage: UNK
     Route: 064
     Dates: start: 20110221
  10. ADVAIR DISKUS [Concomitant]
     Dosage: 1 PUFF EVERY 12 HOURS
     Route: 064
     Dates: start: 20110124
  11. ANUSOL HC [Concomitant]
     Dosage: 2-3 TIMES DAILY
     Route: 064
     Dates: start: 20110429, end: 20110510
  12. ANUSOL HC [Concomitant]
     Dosage: 25 MG, 2-3 TIMES DAILY
     Route: 064
     Dates: start: 20110429, end: 20110602

REACTIONS (6)
  - Maternal exposure timing unspecified [Unknown]
  - Craniosynostosis [Unknown]
  - Neonatal respiratory distress syndrome [Recovered/Resolved]
  - Transient tachypnoea of the newborn [Recovered/Resolved]
  - Drug withdrawal syndrome neonatal [Unknown]
  - Cardiac murmur [Unknown]
